FAERS Safety Report 13814209 (Version 1)
Quarter: 2017Q3

REPORT INFORMATION
  Report Type: Spontaneous
  Country: US (occurrence: US)
  Receive Date: 20170728
  Receipt Date: 20170728
  Transmission Date: 20171127
  Serious: Yes (Hospitalization)
  Sender: FDA-Public Use
  Company Number: None

PATIENT
  Age: 77 Year
  Sex: Male
  Weight: 95.5 kg

DRUGS (1)
  1. EXJADE [Suspect]
     Active Substance: DEFERASIROX
     Indication: IRON OVERLOAD
     Route: 048
     Dates: start: 20140122

REACTIONS (5)
  - Diarrhoea [None]
  - Cardiac disorder [None]
  - Chest pain [None]
  - Full blood count abnormal [None]
  - Platelet count decreased [None]

NARRATIVE: CASE EVENT DATE: 20170519
